FAERS Safety Report 13633550 (Version 1)
Quarter: 2017Q2

REPORT INFORMATION
  Report Type: Spontaneous
  Country: US (occurrence: US)
  Receive Date: 20170531
  Receipt Date: 20170531
  Transmission Date: 20170830
  Serious: No
  Sender: FDA-Public Use
  Company Number: US-ASTELLAS-1555209

PATIENT
  Age: 56 Year
  Sex: Female

DRUGS (1)
  1. TARCEVA [Suspect]
     Active Substance: ERLOTINIB HYDROCHLORIDE
     Indication: METASTASES TO CENTRAL NERVOUS SYSTEM
     Route: 048
     Dates: start: 20140710

REACTIONS (7)
  - Tooth discolouration [Unknown]
  - Localised infection [Unknown]
  - Food intolerance [Unknown]
  - Rash [Unknown]
  - Dry skin [Unknown]
  - Tooth deposit [Unknown]
  - Cow^s milk intolerance [Unknown]

NARRATIVE: CASE EVENT DATE: 20150320
